FAERS Safety Report 8850316 (Version 1)
Quarter: 2012Q4

REPORT INFORMATION
  Report Type: 
  Country: GB (occurrence: GB)
  Receive Date: 20121019
  Receipt Date: 20121019
  Transmission Date: 20130627
  Serious: Yes (Other)
  Sender: FDA-Public Use
  Company Number: PHHY2012GB091790

PATIENT
  Sex: Female
  Weight: 70 kg

DRUGS (3)
  1. ZOLPIDEM [Suspect]
     Indication: INSOMNIA
     Dosage: 10 mg, UNK
     Route: 048
     Dates: end: 20120519
  2. TYSABRI [Suspect]
     Indication: MULTIPLE SCLEROSIS
     Dosage: 300 mg, QW4
     Route: 042
     Dates: start: 201003, end: 20120511
  3. VENLAFAXINE [Suspect]

REACTIONS (4)
  - Urinary tract obstruction [Unknown]
  - Oligohydramnios [Unknown]
  - Ureteric dilatation [Unknown]
  - Exposure during pregnancy [Unknown]
